FAERS Safety Report 25177913 (Version 1)
Quarter: 2025Q2

REPORT INFORMATION
  Report Type: Spontaneous
  Country: SG (occurrence: SG)
  Receive Date: 20250409
  Receipt Date: 20250409
  Transmission Date: 20250716
  Serious: Yes (Death, Life-Threatening, Hospitalization)
  Sender: STRIDES
  Company Number: SG-MLMSERVICE-20250319-PI450444-00059-1

PATIENT
  Age: 31 Year
  Sex: Female

DRUGS (14)
  1. PREDNISOLONE [Suspect]
     Active Substance: PREDNISOLONE
     Indication: Arthritis
     Route: 065
  2. PREDNISOLONE [Suspect]
     Active Substance: PREDNISOLONE
     Indication: Osteoarthritis
     Route: 065
     Dates: start: 2024
  3. PREDNISOLONE [Suspect]
     Active Substance: PREDNISOLONE
     Indication: Arthritis
  4. PREDNISOLONE [Suspect]
     Active Substance: PREDNISOLONE
     Indication: Arthritis
  5. AZATHIOPRINE [Suspect]
     Active Substance: AZATHIOPRINE
     Indication: Product used for unknown indication
     Route: 065
  6. DOXYCYCLINE [Suspect]
     Active Substance: DOXYCYCLINE
     Indication: Evidence based treatment
     Route: 048
     Dates: start: 2024
  7. DOXYCYCLINE [Suspect]
     Active Substance: DOXYCYCLINE
     Indication: Arthritis bacterial
  8. SIROLIMUS [Suspect]
     Active Substance: SIROLIMUS
     Indication: Product used for unknown indication
     Route: 065
  9. RITUXIMAB [Suspect]
     Active Substance: RITUXIMAB
     Indication: Arthritis
     Route: 042
     Dates: start: 2024
  10. RITUXIMAB [Suspect]
     Active Substance: RITUXIMAB
     Indication: Osteoarthritis
  11. RITUXIMAB [Suspect]
     Active Substance: RITUXIMAB
     Indication: Arthritis
  12. RITUXIMAB [Suspect]
     Active Substance: RITUXIMAB
     Indication: Arthritis
  13. CEFTRIAXONE [Concomitant]
     Active Substance: CEFTRIAXONE
     Indication: Arthritis bacterial
     Route: 042
     Dates: start: 2024
  14. CEFTRIAXONE [Concomitant]
     Active Substance: CEFTRIAXONE
     Indication: Evidence based treatment

REACTIONS (5)
  - Hyperammonaemic encephalopathy [Fatal]
  - Status epilepticus [Unknown]
  - Cardiac arrest [Fatal]
  - Hypotension [Fatal]
  - Ureaplasma infection [Fatal]

NARRATIVE: CASE EVENT DATE: 20240101
